FAERS Safety Report 19402906 (Version 2)
Quarter: 2021Q2

REPORT INFORMATION
  Report Type: Spontaneous
  Country: US (occurrence: US)
  Receive Date: 20210611
  Receipt Date: 20210625
  Transmission Date: 20210717
  Serious: Yes (Other)
  Sender: FDA-Public Use
  Company Number: US-BIOVITRUM-2021US4988

PATIENT
  Age: 37 Year
  Sex: Female

DRUGS (4)
  1. KINERET [Suspect]
     Active Substance: ANAKINRA
     Indication: STILL^S DISEASE
     Route: 058
     Dates: start: 202012
  2. SOLU?MEDROL [Concomitant]
     Active Substance: METHYLPREDNISOLONE SODIUM SUCCINATE
  3. MODERNA COVID?19 VACCINE [Suspect]
     Active Substance: CX-024414
  4. METHOTREXATE. [Concomitant]
     Active Substance: METHOTREXATE

REACTIONS (14)
  - Feeling abnormal [Recovered/Resolved]
  - Off label use [Unknown]
  - Pyrexia [Recovered/Resolved]
  - Condition aggravated [Unknown]
  - Myalgia [Recovered/Resolved]
  - Still^s disease [Unknown]
  - Malaise [Unknown]
  - Arthralgia [Recovered/Resolved]
  - Serum ferritin increased [Unknown]
  - Heart rate increased [Unknown]
  - Hepatic enzyme increased [Unknown]
  - C-reactive protein increased [Unknown]
  - Arthritis [Unknown]
  - Anaemia [Unknown]

NARRATIVE: CASE EVENT DATE: 202012
